FAERS Safety Report 4660535-3 (Version None)
Quarter: 2005Q2

REPORT INFORMATION
  Report Type: 
  Country: None (occurrence: None)
  Receive Date: 20050512
  Receipt Date: 20050511
  Transmission Date: 20051028
  Serious: Yes (Other)
  Sender: FDA-Public Use
  Company Number: PHNU2005DE01924

PATIENT
  Age: 48 Year
  Sex: Female
  Weight: 55 kg

DRUGS (3)
  1. LIORESAL [Suspect]
     Indication: PARAPLEGIA
     Route: 048
     Dates: start: 20050405, end: 20050409
  2. DETRUSITOL [Concomitant]
     Indication: HYPERTONIC BLADDER
     Dates: start: 20050228
  3. SPASMEX [Concomitant]
     Indication: HYPERTONIC BLADDER
     Dates: start: 20050228

REACTIONS (3)
  - BLOOD CHLORIDE DECREASED [None]
  - BLOOD SODIUM DECREASED [None]
  - DELUSIONAL DISORDER, PERSECUTORY TYPE [None]
